FAERS Safety Report 7637170-8 (Version None)
Quarter: 2011Q3

REPORT INFORMATION
  Report Type: 
  Country: None (occurrence: None)
  Receive Date: 20110726
  Receipt Date: 20110712
  Transmission Date: 20111222
  Serious: Yes (Other)
  Sender: FDA-Public Use
  Company Number: PHHY2011KR63273

PATIENT

DRUGS (3)
  1. CARBAMAZEPINE [Suspect]
  2. LITHIUM CHLORIDE [Concomitant]
  3. ZYPREXA [Concomitant]
     Dosage: 10 MG, UNK
     Route: 048

REACTIONS (4)
  - TREMOR [None]
  - DISTURBANCE IN ATTENTION [None]
  - PARKINSONISM [None]
  - AMNESIA [None]
